FAERS Safety Report 23337932 (Version 1)
Quarter: 2023Q4

REPORT INFORMATION
  Report Type: Spontaneous
  Country: US (occurrence: US)
  Receive Date: 20231226
  Receipt Date: 20231226
  Transmission Date: 20240110
  Serious: Yes (Other)
  Sender: FDA-Public Use
  Company Number: US-TEVA-VS-3137166

PATIENT

DRUGS (1)
  1. AMETHYST [Suspect]
     Active Substance: ETHINYL ESTRADIOL\LEVONORGESTREL
     Indication: Oral contraception
     Dosage: PILL
     Route: 065
     Dates: start: 2003

REACTIONS (1)
  - Haemorrhage [Unknown]
